FAERS Safety Report 8234180-7 (Version None)
Quarter: 2012Q1

REPORT INFORMATION
  Report Type: 
  Country: None (occurrence: None)
  Receive Date: 20120326
  Receipt Date: 20120313
  Transmission Date: 20120608
  Serious: Yes (Hospitalization, Other)
  Sender: FDA-Public Use
  Company Number: IN-VALEANT-2012VX001171

PATIENT
  Age: 6 Year
  Sex: Male
  Weight: 24 kg

DRUGS (3)
  1. ACETAMINOPHEN [Suspect]
     Route: 065
  2. ERYTHROMYCIN [Suspect]
     Route: 065
  3. MIDAZOLAM [Suspect]
     Route: 048

REACTIONS (2)
  - SEDATION [None]
  - DRUG INTERACTION [None]
